FAERS Safety Report 19461007 (Version 1)
Quarter: 2021Q2

REPORT INFORMATION
  Report Type: Spontaneous
  Country: US (occurrence: US)
  Receive Date: 20210625
  Receipt Date: 20210625
  Transmission Date: 20210717
  Serious: Yes (Hospitalization)
  Sender: FDA-Public Use
  Company Number: US-PFIZER INC-2021691775

PATIENT
  Age: 62 Year
  Sex: Female

DRUGS (2)
  1. IBRANCE [Suspect]
     Active Substance: PALBOCICLIB
     Dosage: 125 MG
     Dates: start: 20210601
  2. IBRANCE [Suspect]
     Active Substance: PALBOCICLIB
     Dosage: 125 MG
     Dates: start: 20210524

REACTIONS (7)
  - Fatigue [Unknown]
  - Haemoglobin decreased [Unknown]
  - Joint swelling [Unknown]
  - Colitis [Unknown]
  - White blood cell count decreased [Unknown]
  - Nausea [Unknown]
  - Peripheral swelling [Unknown]
